FAERS Safety Report 4924480-8 (Version None)
Quarter: 2006Q1

REPORT INFORMATION
  Report Type: 
  Country: None (occurrence: None)
  Receive Date: 20060222
  Receipt Date: 20060214
  Transmission Date: 20060701
  Serious: Yes (Life-Threatening, Hospitalization)
  Sender: FDA-Public Use
  Company Number: 222138

PATIENT
  Age: 75 Year
  Sex: Female

DRUGS (3)
  1. MABTHERA (RITUXIMAB) CONC FOR SOLUTION FOR INFUSION [Suspect]
     Dosage: 650 MG, X2, INTRAVENOUS
     Route: 042
     Dates: start: 20050407, end: 20050421
  2. ACETAMINOPHEN [Concomitant]
  3. PHENERGAN [Concomitant]

REACTIONS (3)
  - HAEMOGLOBIN DECREASED [None]
  - NEUTROPENIA [None]
  - URINARY TRACT INFECTION [None]
